FAERS Safety Report 9777588 (Version 1)
Quarter: 2013Q4

REPORT INFORMATION
  Report Type: Spontaneous
  Country: GB (occurrence: GB)
  Receive Date: 20131222
  Receipt Date: 20131222
  Transmission Date: 20140711
  Serious: Yes (Other)
  Sender: FDA-Public Use
  Company Number: GB-MYLANLABS-2013S1027889

PATIENT
  Age: 60 Year
  Sex: Male

DRUGS (2)
  1. TAMSULOSIN [Suspect]
     Indication: BENIGN PROSTATIC HYPERPLASIA
  2. TAMSULOSIN [Suspect]
     Indication: LOWER URINARY TRACT SYMPTOMS

REACTIONS (2)
  - Drug ineffective [Unknown]
  - Prostatic operation [Unknown]
